FAERS Safety Report 24428591 (Version 1)
Quarter: 2024Q4

REPORT INFORMATION
  Report Type: Spontaneous
  Country: DK (occurrence: DK)
  Receive Date: 20241011
  Receipt Date: 20241011
  Transmission Date: 20250114
  Serious: Yes (Other)
  Sender: AMGEN
  Company Number: DK-AMGEN-DNKSP2024199805

PATIENT

DRUGS (2)
  1. ADALIMUMAB [Suspect]
     Active Substance: ADALIMUMAB
     Indication: Inflammatory bowel disease
     Dosage: UNK
     Route: 065
  2. ADALIMUMAB [Suspect]
     Active Substance: ADALIMUMAB
     Indication: Rheumatic disorder

REACTIONS (12)
  - Leukaemia [Unknown]
  - Gastrointestinal carcinoma [Unknown]
  - Colorectal cancer [Unknown]
  - Hepatocellular carcinoma [Unknown]
  - Lung neoplasm malignant [Unknown]
  - Malignant melanoma [Unknown]
  - Breast cancer [Unknown]
  - Lymphoma [Unknown]
  - Female reproductive neoplasm [Unknown]
  - Male reproductive tract neoplasm [Unknown]
  - Urinary tract neoplasm [Unknown]
  - Neoplasm malignant [Unknown]
